FAERS Safety Report 6997994-7 (Version None)
Quarter: 2010Q3

REPORT INFORMATION
  Report Type: 
  Country: None (occurrence: None)
  Receive Date: 20100920
  Receipt Date: 20070523
  Transmission Date: 20110219
  Serious: Yes (Hospitalization)
  Sender: FDA-Public Use
  Company Number: US-ASTRAZENECA-2006UW25633

PATIENT
  Age: 17351 Day
  Sex: Male
  Weight: 90.7 kg

DRUGS (4)
  1. SEROQUEL [Suspect]
     Indication: SLEEP DISORDER
     Route: 048
     Dates: start: 20050801, end: 20051101
  2. SEROQUEL [Suspect]
     Indication: DEPRESSION
     Route: 048
     Dates: start: 20050801, end: 20051101
  3. SEROQUEL [Suspect]
     Route: 048
     Dates: start: 20050930
  4. SEROQUEL [Suspect]
     Route: 048
     Dates: start: 20050930

REACTIONS (3)
  - DIABETES MELLITUS [None]
  - EYE DISORDER [None]
  - TYPE 2 DIABETES MELLITUS [None]
